FAERS Safety Report 4588919-2 (Version None)
Quarter: 2005Q1

REPORT INFORMATION
  Report Type: 
  Country: None (occurrence: None)
  Receive Date: 20050216
  Receipt Date: 20050127
  Transmission Date: 20050727
  Serious: Yes (Death, Other)
  Sender: FDA-Public Use
  Company Number: USA050189378

PATIENT
  Age: 44 Year
  Sex: Female

DRUGS (2)
  1. ZYPREXA [Suspect]
     Indication: BIPOLAR DISORDER
     Dosage: 5 MG/ 1 DAY
  2. NEURONTIN (GABAPENTIN PFIZER) [Concomitant]

REACTIONS (4)
  - CEREBRAL HAEMORRHAGE [None]
  - CEREBROVASCULAR DISORDER [None]
  - COMA [None]
  - HAEMORRHAGE [None]
